FAERS Safety Report 24364317 (Version 1)
Quarter: 2024Q3

REPORT INFORMATION
  Report Type: Spontaneous
  Country: AT (occurrence: AT)
  Receive Date: 20240925
  Receipt Date: 20240925
  Transmission Date: 20241017
  Serious: Yes (Other)
  Sender: AMGEN
  Company Number: AT-AMGEN-AUTSP2024186613

PATIENT
  Age: 73 Year
  Sex: Female
  Weight: 75 kg

DRUGS (2)
  1. NPLATE [Suspect]
     Active Substance: ROMIPLOSTIM
     Indication: Immune thrombocytopenia
     Dosage: UNK
     Route: 065
     Dates: end: 20240823
  2. NPLATE [Suspect]
     Active Substance: ROMIPLOSTIM
     Dosage: UNK
     Route: 065
     Dates: start: 20240904

REACTIONS (6)
  - Angina pectoris [Recovered/Resolved]
  - Platelet count decreased [Unknown]
  - Platelet count increased [Unknown]
  - Haematoma [Unknown]
  - Petechiae [Unknown]
  - Extra dose administered [Unknown]
